FAERS Safety Report 17035048 (Version 1)
Quarter: 2019Q4

REPORT INFORMATION
  Report Type: Spontaneous
  Country: JP (occurrence: JP)
  Receive Date: 20191115
  Receipt Date: 20191115
  Transmission Date: 20200122
  Serious: Yes (Hospitalization)
  Sender: FDA-Public Use
  Company Number: JP-TEVA-2019-JP-1118253

PATIENT
  Age: 70 Year
  Sex: Female

DRUGS (3)
  1. LEVODOPA [Suspect]
     Active Substance: LEVODOPA
     Indication: PRODUCT USED FOR UNKNOWN INDICATION
     Route: 065
  2. MIRAPEX [Suspect]
     Active Substance: PRAMIPEXOLE DIHYDROCHLORIDE
     Indication: PRODUCT USED FOR UNKNOWN INDICATION
     Route: 065
  3. AZILECT [Suspect]
     Active Substance: RASAGILINE MESYLATE
     Indication: MULTIPLE SYSTEM ATROPHY
     Dosage: 1 MILLIGRAM DAILY;
     Route: 048

REACTIONS (3)
  - Loss of consciousness [Recovering/Resolving]
  - Off label use [Unknown]
  - Blood pressure decreased [Recovering/Resolving]
